FAERS Safety Report 4754250-5 (Version None)
Quarter: 2005Q3

REPORT INFORMATION
  Report Type: 
  Country: None (occurrence: None)
  Receive Date: 20050829
  Receipt Date: 20050816
  Transmission Date: 20060218
  Serious: Yes (Hospitalization)
  Sender: FDA-Public Use
  Company Number: US-JNJFOC-20050502804

PATIENT
  Sex: Female
  Weight: 64.86 kg

DRUGS (21)
  1. RAZADYNE [Suspect]
  2. RAZADYNE [Suspect]
     Indication: DEMENTIA
  3. PLAVIX [Concomitant]
     Route: 048
  4. NAMENDA [Concomitant]
     Route: 048
  5. NAPROXEN [Concomitant]
     Route: 048
  6. ASPIRIN [Concomitant]
  7. FOSAMAX [Concomitant]
  8. PREVICIDE [Concomitant]
  9. MAGNESIUM [Concomitant]
  10. MULTI-VITAMINS [Concomitant]
  11. MULTI-VITAMINS [Concomitant]
  12. MULTI-VITAMINS [Concomitant]
  13. MULTI-VITAMINS [Concomitant]
  14. MULTI-VITAMINS [Concomitant]
  15. MULTI-VITAMINS [Concomitant]
  16. MULTI-VITAMINS [Concomitant]
  17. MULTI-VITAMINS [Concomitant]
  18. ZOCOR [Concomitant]
  19. IMODIUM [Concomitant]
     Dosage: AS NEEDED
  20. ACETAMINOPHEN [Concomitant]
     Route: 048
  21. ACETAMINOPHEN [Concomitant]
     Indication: PAIN
     Dosage: PRN
     Route: 048

REACTIONS (3)
  - DEHYDRATION [None]
  - DIARRHOEA [None]
  - VIRAL INFECTION [None]
